FAERS Safety Report 23936869 (Version 2)
Quarter: 2024Q2

REPORT INFORMATION
  Report Type: Spontaneous
  Country: ES (occurrence: ES)
  Receive Date: 20240604
  Receipt Date: 20240612
  Transmission Date: 20240716
  Serious: Yes (Hospitalization, Other)
  Sender: FDA-Public Use
  Company Number: ES-LEO Pharma-370831

PATIENT
  Sex: Female

DRUGS (1)
  1. ADBRY [Suspect]
     Active Substance: TRALOKINUMAB-LDRM
     Indication: Product used for unknown indication
     Dosage: TRALOKINUMAB, PRESCRIBED ACCORDING TO THE SUMMARY OF PRODUCT CHARACTERISTICS. TREATMENT WITH TRALOKI

REACTIONS (2)
  - Hodgkin^s disease [Unknown]
  - Pulmonary mass [Unknown]
